FAERS Safety Report 8533739-7 (Version None)
Quarter: 2012Q3

REPORT INFORMATION
  Report Type: 
  Country: None (occurrence: None)
  Receive Date: 20120724
  Receipt Date: 20120710
  Transmission Date: 20120928
  Serious: Yes (Congenital Anomaly)
  Sender: FDA-Public Use
  Company Number: DE-MYLANLABS-2012S1013940

PATIENT
  Sex: Female
  Weight: 0.47 kg

DRUGS (5)
  1. FLUOXETINE HCL [Suspect]
     Dosage: 40 [MG/D ]
     Route: 064
     Dates: start: 20100523
  2. AMOXICILLIN [Concomitant]
     Route: 064
  3. ACETAMINOPHEN [Concomitant]
     Route: 064
  4. CIPROFLOXACIN [Concomitant]
     Route: 064
  5. FOLIC ACID [Concomitant]
     Route: 064

REACTIONS (4)
  - MATERNAL EXPOSURE DURING PREGNANCY [None]
  - SPINA BIFIDA [None]
  - HYDROCEPHALUS [None]
  - ARNOLD-CHIARI MALFORMATION [None]
